FAERS Safety Report 8259909-3 (Version None)
Quarter: 2012Q2

REPORT INFORMATION
  Report Type: 
  Country: None (occurrence: None)
  Receive Date: 20120402
  Receipt Date: 20120326
  Transmission Date: 20120825
  Serious: No
  Sender: FDA-Public Use
  Company Number: 2012-00100

PATIENT
  Age: 68 Year
  Sex: Male
  Weight: 106.5953 kg

DRUGS (2)
  1. ZICAM COLD REMEDY ORAL MIST [Suspect]
     Indication: NASOPHARYNGITIS
     Dates: start: 20120201
  2. TRINIVIL [Concomitant]

REACTIONS (3)
  - TONGUE DISCOLOURATION [None]
  - GINGIVAL DISCOLOURATION [None]
  - AGEUSIA [None]
